FAERS Safety Report 10051570 (Version 3)
Quarter: 2014Q2

REPORT INFORMATION
  Report Type: Spontaneous
  Country: US (occurrence: US)
  Receive Date: 20140401
  Receipt Date: 20140414
  Transmission Date: 20141212
  Serious: Yes (Hospitalization, Other)
  Sender: FDA-Public Use
  Company Number: US-DENDREON CORPORATION-2014PROUSA03536

PATIENT
  Age: 84 Year
  Sex: Male
  Weight: 75.28 kg

DRUGS (9)
  1. PROVENGE [Suspect]
     Indication: PROSTATE CANCER METASTATIC
     Dosage: 250 ML, SINGLE
     Route: 042
     Dates: start: 20140210, end: 20140210
  2. ANTIHYPERTENSIVES [Concomitant]
     Indication: BLOOD PRESSURE
  3. ULTRAM [Concomitant]
     Indication: PAIN
     Dosage: 50 MG, Q 6 HRS
  4. LISINOPRIL [Concomitant]
     Indication: PRODUCT USED FOR UNKNOWN INDICATION
     Dosage: 40 MG, QD
     Route: 048
  5. PRAVASTATIN [Concomitant]
     Indication: PRODUCT USED FOR UNKNOWN INDICATION
     Dosage: 80 MG, QD
     Route: 048
  6. ASPIRIN [Concomitant]
     Indication: PRODUCT USED FOR UNKNOWN INDICATION
     Dosage: 81 MG, QHS
     Route: 048
  7. NIACIN [Concomitant]
     Indication: PRODUCT USED FOR UNKNOWN INDICATION
     Dosage: 1000 MG, QHS
     Route: 048
  8. ADVIL [Concomitant]
     Indication: PRODUCT USED FOR UNKNOWN INDICATION
     Dosage: 200 MG, UNK
  9. STOOL SOFTENER [Concomitant]
     Indication: PRODUCT USED FOR UNKNOWN INDICATION
     Dosage: 100 MG,

REACTIONS (22)
  - Upper gastrointestinal haemorrhage [Unknown]
  - Cardiac failure congestive [Unknown]
  - Respiratory failure [Unknown]
  - Tachycardia [Unknown]
  - Oedema [Unknown]
  - Confusional state [Unknown]
  - Chest pain [Recovered/Resolved]
  - Pneumonia [Unknown]
  - Dehydration [Not Recovered/Not Resolved]
  - Cardiomegaly [Unknown]
  - Hypokalaemia [Unknown]
  - Malaise [Unknown]
  - Osteopenia [Unknown]
  - Medical device complication [Not Recovered/Not Resolved]
  - Anaemia [Recovered/Resolved]
  - Fatigue [Unknown]
  - Hyperhidrosis [Unknown]
  - Decreased appetite [Unknown]
  - Nausea [Recovered/Resolved]
  - Pain [Unknown]
  - Vomiting [Recovered/Resolved]
  - Asthenia [Recovered/Resolved]
